FAERS Safety Report 6788557-7 (Version None)
Quarter: 2010Q2

REPORT INFORMATION
  Report Type: 
  Country: None (occurrence: None)
  Receive Date: 20100623
  Receipt Date: 20080401
  Transmission Date: 20101027
  Serious: No
  Sender: FDA-Public Use
  Company Number: US-PFIZER INC-2008029122

PATIENT
  Sex: Male
  Weight: 88.636 kg

DRUGS (2)
  1. XALATAN [Suspect]
     Indication: GLAUCOMA
     Route: 047
     Dates: start: 20070101
  2. NEXIUM [Concomitant]

REACTIONS (5)
  - BLOOD CHOLESTEROL INCREASED [None]
  - DRY EYE [None]
  - EYE INJURY [None]
  - EYE IRRITATION [None]
  - VISUAL ACUITY REDUCED [None]
